FAERS Safety Report 18885150 (Version 1)
Quarter: 2021Q1

REPORT INFORMATION
  Report Type: Spontaneous
  Country: US (occurrence: US)
  Receive Date: 20210211
  Receipt Date: 20210211
  Transmission Date: 20210420
  Serious: Yes (Disabling)
  Sender: FDA-Public Use
  Company Number: None

PATIENT
  Age: 43 Year
  Sex: Male
  Weight: 90 kg

DRUGS (1)
  1. MANAKUAGUARD MEDICAL GRADE MANUKA HONEY SINUS CLEANSER [Suspect]
     Active Substance: HERBALS\HONEY
     Indication: SINUSITIS
     Dosage: ?          QUANTITY:4 SPRAY(S);OTHER ROUTE:NASAL SPRAY?
     Dates: start: 20210101, end: 20210211

REACTIONS (1)
  - Product contamination microbial [None]

NARRATIVE: CASE EVENT DATE: 20210101
